FAERS Safety Report 9655528 (Version 1)
Quarter: 2013Q4

REPORT INFORMATION
  Report Type: Spontaneous
  Country: CN (occurrence: CN)
  Receive Date: 20131029
  Receipt Date: 20131029
  Transmission Date: 20140711
  Serious: Yes (Life-Threatening, Hospitalization)
  Sender: FDA-Public Use
  Company Number: CN-ROCHE-1295439

PATIENT
  Age: 7 Year
  Sex: Male

DRUGS (1)
  1. PEGASYS [Suspect]
     Indication: HEPATITIS B
     Route: 065
     Dates: start: 20131001, end: 20131001

REACTIONS (3)
  - Pyrexia [Recovering/Resolving]
  - Haematemesis [Unknown]
  - Loss of consciousness [Unknown]
